FAERS Safety Report 23696580 (Version 3)
Quarter: 2024Q2

REPORT INFORMATION
  Report Type: Spontaneous
  Country: BE (occurrence: BE)
  Receive Date: 20240402
  Receipt Date: 20240620
  Transmission Date: 20240715
  Serious: Yes (Death, Life-Threatening, Hospitalization, Other)
  Sender: FDA-Public Use
  Company Number: BE-SANDOZ-SDZ2024BE033145

PATIENT
  Age: 52 Year
  Sex: Male
  Weight: 87 kg

DRUGS (4)
  1. ACETAMINOPHEN [Suspect]
     Active Substance: ACETAMINOPHEN
     Indication: Back pain
     Dosage: 6 GRAM, ONCE A DAY (6 G/ DAY) OVER THE LAST 3 DAYS
     Route: 065
  2. PREGABALIN [Concomitant]
     Active Substance: PREGABALIN
     Indication: Back pain
     Dosage: UNK
     Route: 065
  3. OXYCODONE [Concomitant]
     Active Substance: OXYCODONE\OXYCODONE HYDROCHLORIDE
     Indication: Back pain
     Dosage: UNK
     Route: 065
  4. CLONAZEPAM [Concomitant]
     Active Substance: CLONAZEPAM
     Indication: Back pain
     Dosage: UNK
     Route: 065

REACTIONS (5)
  - Hyperbilirubinaemia [Fatal]
  - Encephalopathy [Fatal]
  - Acute hepatic failure [Fatal]
  - Overdose [Fatal]
  - Coagulopathy [Fatal]
